FAERS Safety Report 7701033-X (Version None)
Quarter: 2011Q3

REPORT INFORMATION
  Report Type: 
  Country: None (occurrence: None)
  Receive Date: 20110822
  Receipt Date: 20110809
  Transmission Date: 20111222
  Serious: Yes (Other)
  Sender: FDA-Public Use
  Company Number: US-BAYER-201041665NA

PATIENT
  Age: 20 Year
  Sex: Female
  Weight: 79 kg

DRUGS (6)
  1. ZANTAC [Concomitant]
     Dosage: 150 MG, UNK
     Route: 048
     Dates: start: 20090302
  2. PROMETHAZINE [Concomitant]
     Dosage: UNK
     Route: 048
     Dates: start: 20090302
  3. TRETINOIN [Concomitant]
     Dosage: UNK
     Route: 061
     Dates: start: 20090224
  4. YAZ [Suspect]
     Indication: CONTRACEPTION
     Dosage: UNK
     Route: 048
     Dates: start: 20081001, end: 20090301
  5. PROTONIX [Concomitant]
     Indication: PAIN
     Dosage: 40 MG, UNK
     Route: 048
     Dates: start: 20090224
  6. HYDROCODONE [Concomitant]
     Dosage: UNK
     Route: 048
     Dates: start: 20090302

REACTIONS (2)
  - CHOLELITHIASIS [None]
  - CHOLECYSTITIS CHRONIC [None]
